FAERS Safety Report 7577838-5 (Version None)
Quarter: 2011Q2

REPORT INFORMATION
  Report Type: 
  Country: None (occurrence: None)
  Receive Date: 20110628
  Receipt Date: 20110615
  Transmission Date: 20111010
  Serious: Yes (Other)
  Sender: FDA-Public Use
  Company Number: PHHY2011US53862

PATIENT
  Sex: Female

DRUGS (4)
  1. ARANESP [Concomitant]
  2. CLOZAPINE [Suspect]
  3. ERGOCALCIFEROL [Concomitant]
  4. DEPAKOTE [Concomitant]

REACTIONS (3)
  - NEUTROPHIL COUNT DECREASED [None]
  - RENAL FAILURE [None]
  - WHITE BLOOD CELL COUNT DECREASED [None]
